FAERS Safety Report 17259166 (Version 1)
Quarter: 2020Q1

REPORT INFORMATION
  Report Type: Spontaneous
  Country: CN (occurrence: CN)
  Receive Date: 20200110
  Receipt Date: 20200110
  Transmission Date: 20200409
  Serious: Yes (Hospitalization, Other)
  Sender: FDA-Public Use
  Company Number: CN-PFM-2020-00003

PATIENT

DRUGS (8)
  1. VINORELBINE [Suspect]
     Active Substance: VINORELBINE TARTRATE
     Dosage: 50 MG D1,8
     Dates: start: 20130311
  2. CISPLATIN. [Suspect]
     Active Substance: CISPLATIN
     Indication: ATELECTASIS
     Dosage: 20 MG D2-6
     Dates: start: 20130128
  3. OMEPRAZOLE. [Concomitant]
     Active Substance: OMEPRAZOLE
     Indication: PROPHYLAXIS
     Dosage: UNK
  4. VINORELBINE [Suspect]
     Active Substance: VINORELBINE TARTRATE
     Indication: ATELECTASIS
     Dosage: 50 MG D1,8
     Dates: start: 20130128
  5. TROPISETRON HYDROCHLORIDE [Concomitant]
     Active Substance: TROPISETRON HYDROCHLORIDE
     Indication: ANTIEMETIC SUPPORTIVE CARE
     Dosage: UNK
  6. VINORELBINE [Suspect]
     Active Substance: VINORELBINE TARTRATE
     Indication: LUNG NEOPLASM MALIGNANT
     Dosage: 50 MG D1,8
     Dates: start: 20121227
  7. CISPLATIN. [Suspect]
     Active Substance: CISPLATIN
     Indication: LUNG NEOPLASM MALIGNANT
     Dosage: 40 MG D2-4
     Dates: start: 20121227
  8. CISPLATIN. [Suspect]
     Active Substance: CISPLATIN
     Dosage: 20 MG D2-6
     Dates: start: 20130311

REACTIONS (2)
  - Acute myeloid leukaemia [Unknown]
  - Bone marrow failure [Recovering/Resolving]
